FAERS Safety Report 15857684 (Version 1)
Quarter: 2019Q1

REPORT INFORMATION
  Report Type: Spontaneous
  Country: US (occurrence: US)
  Receive Date: 20190123
  Receipt Date: 20190123
  Transmission Date: 20190417
  Serious: Yes (Other)
  Sender: FDA-Public Use
  Company Number: US-LANNETT COMPANY, INC.-US-2019LAN000082

PATIENT

DRUGS (2)
  1. ZAROXOLYN [Suspect]
     Active Substance: METOLAZONE
     Indication: RENAL FAILURE
     Dosage: 2.5 MG, QD
     Route: 048
     Dates: start: 20130319
  2. PREDNISONE. [Concomitant]
     Active Substance: PREDNISONE
     Indication: PRODUCT USED FOR UNKNOWN INDICATION
     Dosage: 2.5 MG, UNK

REACTIONS (1)
  - Pemphigoid [Not Recovered/Not Resolved]
